FAERS Safety Report 7678548-6 (Version None)
Quarter: 2011Q3

REPORT INFORMATION
  Report Type: 
  Country: None (occurrence: None)
  Receive Date: 20110811
  Receipt Date: 20081223
  Transmission Date: 20111222
  Serious: Yes (Disabling, Other)
  Sender: FDA-Public Use
  Company Number: US-BAYER-200838121NA

PATIENT
  Sex: Male
  Weight: 82.54 kg

DRUGS (32)
  1. MAGNEVIST [Suspect]
     Dosage: UNK
     Route: 042
     Dates: start: 20030930, end: 20030930
  2. MAGNEVIST [Suspect]
     Dosage: UNK, ONCE
     Route: 042
     Dates: start: 20040225, end: 20040225
  3. MAGNEVIST [Suspect]
     Dosage: UNK, ONCE
     Route: 042
     Dates: start: 20040809, end: 20040809
  4. OMNISCAN [Suspect]
     Indication: NUCLEAR MAGNETIC RESONANCE IMAGING
  5. OPTIMARK [Suspect]
     Indication: NUCLEAR MAGNETIC RESONANCE IMAGING
  6. DIOVAN [Concomitant]
  7. MAGNEVIST [Suspect]
     Indication: IMAGING PROCEDURE
     Dosage: UNK, ONCE
     Route: 042
     Dates: start: 19960205, end: 19960205
  8. MAGNEVIST [Suspect]
     Dosage: UNK, ONCE
     Route: 042
     Dates: start: 20010507, end: 20010507
  9. MAGNEVIST [Suspect]
     Dosage: UNK, ONCE
     Route: 042
     Dates: start: 20060512, end: 20060512
  10. CARDIZEM CD [Concomitant]
  11. MAGNEVIST [Suspect]
     Dosage: 20 ML, ONCE
     Route: 042
     Dates: start: 19970411, end: 19970411
  12. METOPROLOL TARTRATE [Concomitant]
  13. ALLOPURINOL [Concomitant]
  14. MAGNEVIST [Suspect]
     Dosage: UNK, ONCE
     Route: 042
     Dates: start: 20030226, end: 20030226
  15. MAGNEVIST [Suspect]
     Dosage: UNK, ONCE
     Route: 042
     Dates: start: 20050803, end: 20050803
  16. KEPPRA [Concomitant]
  17. LASIX [Concomitant]
  18. NEPHROCAPS [Concomitant]
  19. MAGNEVIST [Suspect]
     Indication: NUCLEAR MAGNETIC RESONANCE IMAGING
     Dosage: UNK UNK, ONCE
     Dates: start: 19950831, end: 19950831
  20. MAGNEVIST [Suspect]
     Dosage: UNK, ONCE
     Route: 042
     Dates: start: 20020307, end: 20020307
  21. MAGNEVIST [Suspect]
     Dosage: UNK, ONCE
     Route: 042
     Dates: start: 20040427, end: 20040427
  22. DARBEPOETIN ALFA [Concomitant]
  23. MAGNEVIST [Suspect]
     Dosage: 20 ML, ONCE
     Route: 042
     Dates: start: 19960819, end: 19960819
  24. MAGNEVIST [Suspect]
     Dosage: UNK, ONCE
     Dates: start: 20000225, end: 20000225
  25. MAGNEVIST [Suspect]
     Dosage: UNK, ONCE
     Route: 042
     Dates: start: 20050126, end: 20050126
  26. MAGNEVIST [Suspect]
     Dosage: UNK, ONCE
     Route: 042
     Dates: start: 20060201, end: 20060201
  27. LYRICA [Concomitant]
  28. ALTACE [Concomitant]
  29. MAGNEVIST [Suspect]
     Dosage: UNK, ONCE
     Route: 042
     Dates: start: 20011130
  30. MAGNEVIST [Suspect]
     Dosage: UNK, ONCE
     Route: 042
     Dates: start: 20020920, end: 20020920
  31. MAGNEVIST [Suspect]
     Dosage: UNK, ONCE
     Route: 042
     Dates: start: 20061009, end: 20061009
  32. COUMADIN [Concomitant]

REACTIONS (14)
  - SKIN FIBROSIS [None]
  - SCAR [None]
  - QUALITY OF LIFE DECREASED [None]
  - FIBROSIS [None]
  - GENERAL PHYSICAL HEALTH DETERIORATION [None]
  - JOINT CONTRACTURE [None]
  - SKIN INDURATION [None]
  - EMOTIONAL DISTRESS [None]
  - MOBILITY DECREASED [None]
  - INJURY [None]
  - ANHEDONIA [None]
  - NEPHROGENIC SYSTEMIC FIBROSIS [None]
  - ANXIETY [None]
  - PAIN [None]
